FAERS Safety Report 10093048 (Version 1)
Quarter: 2014Q2

REPORT INFORMATION
  Report Type: Spontaneous
  Country: US (occurrence: US)
  Receive Date: 20140421
  Receipt Date: 20140421
  Transmission Date: 20141212
  Serious: No
  Sender: FDA-Public Use
  Company Number: US-SA-2013SA105593

PATIENT
  Sex: Female

DRUGS (2)
  1. ALLEGRA [Suspect]
     Route: 065
  2. OPHTHALMOLOGICALS NOS [Suspect]

REACTIONS (3)
  - Pruritus [Unknown]
  - Rash [Unknown]
  - Medication error [Unknown]
